FAERS Safety Report 10170114 (Version 1)
Quarter: 2014Q2

REPORT INFORMATION
  Report Type: Spontaneous
  Country: US (occurrence: US)
  Receive Date: 20140513
  Receipt Date: 20140513
  Transmission Date: 20141212
  Serious: Yes (Hospitalization)
  Sender: FDA-Public Use
  Company Number: US-VIIV HEALTHCARE LIMITED-A1072983A

PATIENT
  Sex: Male

DRUGS (2)
  1. TIVICAY [Suspect]
     Indication: PRODUCT USED FOR UNKNOWN INDICATION
  2. TRUVADA [Concomitant]

REACTIONS (1)
  - Pancreatitis relapsing [Not Recovered/Not Resolved]
